FAERS Safety Report 15309430 (Version 1)
Quarter: 2018Q3

REPORT INFORMATION
  Report Type: Spontaneous
  Country: US (occurrence: US)
  Receive Date: 20180823
  Receipt Date: 20180823
  Transmission Date: 20181010
  Serious: Yes (Other)
  Sender: FDA-Public Use
  Company Number: US-ROCHE-2173278

PATIENT
  Sex: Female

DRUGS (2)
  1. ZELBORAF [Suspect]
     Active Substance: VEMURAFENIB
     Indication: COLON CANCER STAGE IV
     Route: 048
  2. ZELBORAF [Suspect]
     Active Substance: VEMURAFENIB
     Dosage: ONGOING UNKNOWN
     Route: 048

REACTIONS (1)
  - Fistula [Not Recovered/Not Resolved]
